FAERS Safety Report 7863265-X (Version None)
Quarter: 2011Q4

REPORT INFORMATION
  Report Type: 
  Country: None (occurrence: None)
  Receive Date: 20111027
  Receipt Date: 20101201
  Transmission Date: 20120403
  Serious: No
  Sender: FDA-Public Use
  Company Number: US-AMGEN-USASP2010000700

PATIENT
  Age: 50 Year
  Sex: Male

DRUGS (5)
  1. ENBREL [Suspect]
     Indication: PSORIASIS
  2. LORTAB [Concomitant]
     Dosage: UNK
     Dates: start: 20060201
  3. ZANAFLEX [Concomitant]
     Dosage: UNK
     Dates: start: 20060201
  4. NAPROSYN                           /00256202/ [Concomitant]
     Dosage: UNK
     Dates: start: 20060201
  5. ENBREL [Suspect]
     Indication: PSORIATIC ARTHROPATHY
     Dosage: 50 MG, QWK
     Dates: start: 20061201

REACTIONS (4)
  - FOLLICULITIS [None]
  - INJECTION SITE PAIN [None]
  - NEEDLE ISSUE [None]
  - LOCALISED INFECTION [None]
